FAERS Safety Report 12626586 (Version 2)
Quarter: 2016Q3

REPORT INFORMATION
  Report Type: Spontaneous
  Country: US (occurrence: US)
  Receive Date: 20160805
  Receipt Date: 20160829
  Transmission Date: 20161109
  Serious: No
  Sender: FDA-Public Use
  Company Number: US-LUNDBECK-DKLU2016966

PATIENT
  Age: 73 Year
  Sex: Male

DRUGS (8)
  1. NORTHERA [Suspect]
     Active Substance: DROXIDOPA
     Route: 048
  2. NORTHERA [Suspect]
     Active Substance: DROXIDOPA
     Route: 048
  3. NORTHERA [Suspect]
     Active Substance: DROXIDOPA
     Route: 048
  4. NORTHERA [Suspect]
     Active Substance: DROXIDOPA
     Route: 048
  5. NORTHERA [Suspect]
     Active Substance: DROXIDOPA
     Indication: ORTHOSTATIC HYPOTENSION
     Dosage: SCHEDULE B AND TITRATING
     Route: 048
     Dates: start: 20160701
  6. NORTHERA [Suspect]
     Active Substance: DROXIDOPA
     Route: 048
  7. NORTHERA [Suspect]
     Active Substance: DROXIDOPA
     Route: 048
     Dates: start: 201606
  8. NORTHERA [Suspect]
     Active Substance: DROXIDOPA
     Route: 048

REACTIONS (7)
  - Blood pressure increased [Unknown]
  - Drug dose omission [Unknown]
  - Condition aggravated [Unknown]
  - Musculoskeletal stiffness [Unknown]
  - Dizziness [Not Recovered/Not Resolved]
  - Arthralgia [Unknown]
  - Balance disorder [Unknown]

NARRATIVE: CASE EVENT DATE: 201607
